FAERS Safety Report 5306565-X (Version None)
Quarter: 2007Q2

REPORT INFORMATION
  Report Type: 
  Country: None (occurrence: None)
  Receive Date: 20070424
  Receipt Date: 20070412
  Transmission Date: 20071010
  Serious: Yes (Other)
  Sender: FDA-Public Use
  Company Number: BR-PFIZER INC-2007029960

PATIENT
  Sex: Male

DRUGS (2)
  1. VIAGRA [Suspect]
     Indication: ERECTILE DYSFUNCTION
     Dosage: FREQ:UNKNOW: UNKNOWN
     Route: 048
  2. INSULIN [Concomitant]

REACTIONS (3)
  - BLINDNESS [None]
  - EYE INFLAMMATION [None]
  - RETINAL DETACHMENT [None]
